FAERS Safety Report 14257128 (Version 1)
Quarter: 2017Q4

REPORT INFORMATION
  Report Type: Spontaneous
  Country: GB (occurrence: GB)
  Receive Date: 20171206
  Receipt Date: 20171206
  Transmission Date: 20180321
  Serious: Yes (Disabling, Other)
  Sender: FDA-Public Use
  Company Number: GB-ASTRAZENECA-2017SF23711

PATIENT
  Age: 65 Year
  Sex: Male
  Weight: 106 kg

DRUGS (7)
  1. GLICLAZIDE [Concomitant]
     Active Substance: GLICLAZIDE
  2. ATORVASTATIN CALCIUM. [Concomitant]
     Active Substance: ATORVASTATIN CALCIUM
  3. FELODIPINE. [Concomitant]
     Active Substance: FELODIPINE
  4. FORXIGA [Suspect]
     Active Substance: DAPAGLIFLOZIN
     Indication: BLOOD GLUCOSE INCREASED
     Dosage: 10.0MG UNKNOWN
     Route: 048
     Dates: start: 20160216, end: 20160707
  5. PERINDOPRIL [Concomitant]
     Active Substance: PERINDOPRIL
  6. ALLOPURINOL. [Concomitant]
     Active Substance: ALLOPURINOL
  7. METFORMIN [Concomitant]
     Active Substance: METFORMIN HYDROCHLORIDE

REACTIONS (4)
  - Candida infection [Not Recovered/Not Resolved]
  - Penile pain [Not Recovered/Not Resolved]
  - Penile size reduced [Not Recovered/Not Resolved]
  - Depression [Unknown]
